FAERS Safety Report 13418841 (Version 3)
Quarter: 2017Q2

REPORT INFORMATION
  Report Type: Spontaneous
  Country: CA (occurrence: CA)
  Receive Date: 20170406
  Receipt Date: 20170424
  Transmission Date: 20170830
  Serious: Yes (Other)
  Sender: FDA-Public Use
  Company Number: CA-ROCHE-1915717

PATIENT
  Age: 59 Year
  Sex: Male

DRUGS (12)
  1. COVERSYL [Concomitant]
     Active Substance: PERINDOPRIL
  2. LEVEMIR [Concomitant]
     Active Substance: INSULIN DETEMIR
  3. LYRICA [Concomitant]
     Active Substance: PREGABALIN
  4. PREDNISONE. [Concomitant]
     Active Substance: PREDNISONE
  5. CELLCEPT [Suspect]
     Active Substance: MYCOPHENOLATE MOFETIL\MYCOPHENOLATE MOFETIL HYDROCHLORIDE
     Indication: ACQUIRED EPIDERMOLYSIS BULLOSA
     Route: 048
     Dates: start: 2015
  6. ZOPICLONE [Concomitant]
     Active Substance: ZOPICLONE
  7. PANTOPRAZOLE [Concomitant]
     Active Substance: PANTOPRAZOLE
  8. HYDROCHLOROTHIAZIDE. [Concomitant]
     Active Substance: HYDROCHLOROTHIAZIDE
  9. LUMIGAN [Concomitant]
     Active Substance: BIMATOPROST
     Route: 065
  10. RISEDRONATE [Concomitant]
     Active Substance: RISEDRONATE SODIUM
  11. ROSUVASTATIN. [Concomitant]
     Active Substance: ROSUVASTATIN
  12. AMLODIPINE [Concomitant]
     Active Substance: AMLODIPINE BESYLATE

REACTIONS (3)
  - Blister [Not Recovered/Not Resolved]
  - Gait disturbance [Unknown]
  - Diarrhoea [Recovered/Resolved]

NARRATIVE: CASE EVENT DATE: 201704
